FAERS Safety Report 4518104-1 (Version None)
Quarter: 2004Q4

REPORT INFORMATION
  Report Type: 
  Country: None (occurrence: None)
  Receive Date: 20041130
  Receipt Date: 20041123
  Transmission Date: 20050328
  Serious: Yes (Hospitalization, Other)
  Sender: FDA-Public Use
  Company Number: FRWYE225923NOV04

PATIENT
  Age: 69 Year
  Sex: Female

DRUGS (7)
  1. EFFEXOR [Suspect]
     Route: 048
  2. LOVENOX (HEPARIN-FRANCTION, SODIUM SALT) [Suspect]
     Route: 048
  3. OMEPRAZOLE [Suspect]
     Dosage: ORAL
     Route: 048
  4. PRIMPERAN TAB [Suspect]
     Dosage: ORAL
     Route: 048
  5. MORPHINE SULFATE [Suspect]
     Dosage: ORAL
     Route: 048
  6. TRACLEER [Suspect]
     Dosage: 125 MG 2X PER 1 DAY
     Route: 048
  7. MOVICOL (MACROGOL/POTASSIUM CHLORIDE/SODIUM BICARBONATE/SODIUM CHLORID [Concomitant]

REACTIONS (2)
  - CONDITION AGGRAVATED [None]
  - UNEVALUABLE EVENT [None]
